FAERS Safety Report 7736444-X (Version None)
Quarter: 2011Q3

REPORT INFORMATION
  Report Type: 
  Country: None (occurrence: None)
  Receive Date: 20110908
  Receipt Date: 20110902
  Transmission Date: 20111222
  Serious: Yes (Hospitalization, Other)
  Sender: FDA-Public Use
  Company Number: US-BRISTOL-MYERS SQUIBB COMPANY-16028219

PATIENT
  Age: 25 Year
  Sex: Female
  Weight: 107 kg

DRUGS (3)
  1. CYTARABINE [Suspect]
     Indication: ACUTE MYELOID LEUKAEMIA
     Dosage: LAST DOSE ON 02JUN11
     Route: 042
     Dates: start: 20110526
  2. DAUNORUBICIN HCL [Suspect]
     Indication: ACUTE MYELOID LEUKAEMIA
     Dosage: LAST DOSE ON 28MAY11
     Route: 042
     Dates: start: 20110526
  3. SPRYCEL [Suspect]
     Indication: ACUTE MYELOID LEUKAEMIA
     Dosage: LAST DOSE ON 15JUN11
     Route: 048
     Dates: start: 20110526

REACTIONS (3)
  - HYPOAESTHESIA [None]
  - APHASIA [None]
  - INCONTINENCE [None]
